FAERS Safety Report 8373861-1 (Version None)
Quarter: 2012Q2

REPORT INFORMATION
  Report Type: 
  Country: None (occurrence: None)
  Receive Date: 20120521
  Receipt Date: 20120507
  Transmission Date: 20120825
  Serious: Yes (Hospitalization)
  Sender: FDA-Public Use
  Company Number: US-ROCHE-1067072

PATIENT
  Sex: Female

DRUGS (8)
  1. SYNTHROID [Concomitant]
  2. DACLATASVIR [Suspect]
     Indication: HEPATITIS C
     Route: 048
     Dates: start: 20120419
  3. HYDROXYZINE [Concomitant]
  4. HYDROCHLOROTHIAZIDE/SPIRONOLACTONE [Concomitant]
  5. LEVOTHYROXINE SODIUM [Concomitant]
  6. PEGASYS [Suspect]
     Indication: HEPATITIS C
     Route: 058
     Dates: start: 20120418
  7. COPEGUS [Suspect]
     Indication: HEPATITIS C
     Route: 048
     Dates: start: 20120418
  8. ASPIRIN [Concomitant]

REACTIONS (1)
  - PANIC ATTACK [None]
